FAERS Safety Report 4479067-0 (Version None)
Quarter: 2004Q4

REPORT INFORMATION
  Report Type: 
  Country: None (occurrence: None)
  Receive Date: 20040923
  Receipt Date: 20040616
  Transmission Date: 20050328
  Serious: No
  Sender: FDA-Public Use
  Company Number: 207393

PATIENT
  Age: 76 Year
  Sex: Male
  Weight: 73.4 kg

DRUGS (14)
  1. AVASTIN [Suspect]
     Indication: COLORECTAL CANCER
     Dosage: 5 MG/KG, Q2W, INTRAVENOUS
     Route: 042
     Dates: start: 20040323
  2. DIGOXIN [Concomitant]
  3. COUMADIN [Concomitant]
  4. LASIX [Concomitant]
  5. ATENOLOL [Concomitant]
  6. VIOXX [Concomitant]
  7. PLAQUENIL [Concomitant]
  8. POTASSIIUM (POTASSIUM NOS) [Concomitant]
  9. PROSCAR [Concomitant]
  10. ELAVIL [Concomitant]
  11. AMBIEN [Concomitant]
  12. XALATAN [Concomitant]
  13. MAG OXIDE (MAGNESIUM OXIDE) [Concomitant]
  14. NITROGLYCERIN (NITROGLYLCERIN) [Concomitant]

REACTIONS (1)
  - PROTEINURIA [None]
